FAERS Safety Report 5370924-X (Version None)
Quarter: 2007Q2

REPORT INFORMATION
  Report Type: 
  Country: None (occurrence: None)
  Receive Date: 20070626
  Receipt Date: 20070614
  Transmission Date: 20071010
  Serious: Yes (Other)
  Sender: FDA-Public Use
  Company Number: US-PFIZER INC-2007049488

PATIENT
  Sex: Male

DRUGS (7)
  1. LYRICA [Suspect]
  2. PROCRIT [Suspect]
     Indication: ANAEMIA OF MALIGNANT DISEASE
     Dosage: DAILY DOSE:40000I.U.
  3. PROCRIT [Suspect]
     Dosage: DAILY DOSE:80000I.U.
  4. REVLIMID [Suspect]
  5. LEUKINE [Suspect]
  6. LASIX [Concomitant]
  7. NEURONTIN [Concomitant]
     Indication: SPONDYLITIS

REACTIONS (6)
  - DRUG EFFECT DECREASED [None]
  - FEELING ABNORMAL [None]
  - INFLUENZA LIKE ILLNESS [None]
  - NEUROPATHY PERIPHERAL [None]
  - OEDEMA PERIPHERAL [None]
  - PANCYTOPENIA [None]
